FAERS Safety Report 6007821-2 (Version None)
Quarter: 2008Q4

REPORT INFORMATION
  Report Type: 
  Country: None (occurrence: None)
  Receive Date: 20081217
  Receipt Date: 20080630
  Transmission Date: 20090506
  Serious: No
  Sender: FDA-Public Use
  Company Number: US-ASTRAZENECA-2008UW13136

PATIENT
  Age: 53 Year
  Sex: Male
  Weight: 149.7 kg

DRUGS (3)
  1. CRESTOR [Suspect]
     Indication: BLOOD CHOLESTEROL INCREASED
     Route: 048
  2. ATENOLOL [Concomitant]
  3. DIURETIC [Concomitant]

REACTIONS (3)
  - ASTHENIA [None]
  - MYALGIA [None]
  - WEIGHT INCREASED [None]
